FAERS Safety Report 7660533-1 (Version None)
Quarter: 2011Q3

REPORT INFORMATION
  Report Type: 
  Country: None (occurrence: None)
  Receive Date: 20110805
  Receipt Date: 20110727
  Transmission Date: 20111222
  Serious: Yes (Hospitalization)
  Sender: FDA-Public Use
  Company Number: FR-ASTRAZENECA-2011SE44994

PATIENT
  Age: 31472 Day
  Sex: Female

DRUGS (10)
  1. NEXIUM [Suspect]
     Route: 048
     Dates: start: 20050101, end: 20110624
  2. MODOPAR [Concomitant]
     Route: 048
  3. STALEVO 100 [Concomitant]
     Route: 048
     Dates: start: 20110201
  4. ASPIRIN [Concomitant]
     Route: 048
     Dates: start: 20060101
  5. STABLON [Concomitant]
     Route: 048
  6. RAMIPRIL [Concomitant]
     Route: 048
     Dates: start: 20070101, end: 20110622
  7. FUROSEMIDE [Concomitant]
     Route: 048
     Dates: start: 20080101
  8. TRIVASTAL [Concomitant]
     Route: 048
  9. SECTRAL [Concomitant]
     Route: 048
     Dates: start: 20080101
  10. FOSAMAX [Concomitant]
     Route: 048
     Dates: start: 20100101

REACTIONS (2)
  - BLOOD CREATINE PHOSPHOKINASE INCREASED [None]
  - MYOGLOBIN BLOOD INCREASED [None]
